FAERS Safety Report 10330449 (Version 2)
Quarter: 2014Q3

REPORT INFORMATION
  Report Type: Report from Study
  Country: DE (occurrence: DE)
  Receive Date: 20140722
  Receipt Date: 20140829
  Transmission Date: 20150326
  Serious: Yes (Hospitalization)
  Sender: FDA-Public Use
  Company Number: DE-ROCHE-1436496

PATIENT
  Age: 60 Year
  Sex: Female
  Weight: 55.8 kg

DRUGS (6)
  1. BENDAMUSTINE [Suspect]
     Active Substance: BENDAMUSTINE
     Indication: NON-HODGKIN^S LYMPHOMA
     Dosage: LAST DOSE PRIOR TO SAE 17/JAN/2014?NUMBER OF CYCLES: 6
     Route: 042
     Dates: start: 20130807, end: 20140117
  2. PARACETAMOL [Concomitant]
     Active Substance: ACETAMINOPHEN
     Indication: NON-HODGKIN^S LYMPHOMA
     Dosage: NUMBER OF CYCLES: 8
     Route: 048
     Dates: start: 20130807, end: 20140312
  3. TAVEGIL [Concomitant]
     Active Substance: CLEMASTINE FUMARATE
     Indication: NON-HODGKIN^S LYMPHOMA
     Dosage: NUMBER OF CYCLES: 8
     Route: 042
     Dates: start: 20130807, end: 20140312
  4. RITUXIMAB [Suspect]
     Active Substance: RITUXIMAB
     Indication: NON-HODGKIN^S LYMPHOMA
     Dosage: MOST RECENT DOSE PRIOR TO ONSET OF ADVERSE EVENT WAS ON 12/MAR/2014?NUMBER OF CYCLES: 8
     Route: 042
     Dates: start: 20130807, end: 20140312
  5. RANITIC [Concomitant]
     Active Substance: RANITIDINE HYDROCHLORIDE
     Indication: NON-HODGKIN^S LYMPHOMA
     Dosage: NUMBER OF CYCLES: 8
     Route: 042
     Dates: start: 20130807, end: 20140312
  6. GRANISETRON [Concomitant]
     Active Substance: GRANISETRON
     Indication: NON-HODGKIN^S LYMPHOMA
     Dosage: NUMBER OF CYCLES: 8
     Route: 042
     Dates: start: 20130807, end: 20140821

REACTIONS (1)
  - Acute promyelocytic leukaemia [Not Recovered/Not Resolved]

NARRATIVE: CASE EVENT DATE: 20140625
